FAERS Safety Report 25505200 (Version 2)
Quarter: 2025Q3

REPORT INFORMATION
  Report Type: Spontaneous
  Country: JP (occurrence: JP)
  Receive Date: 20250702
  Receipt Date: 20250717
  Transmission Date: 20251020
  Serious: Yes (Disabling, Other)
  Sender: JAZZ
  Company Number: JP-JAZZ PHARMACEUTICALS-2025-JP-016450

PATIENT
  Age: 63 Year
  Sex: Female

DRUGS (1)
  1. VYXEOS [Suspect]
     Active Substance: CYTARABINE\DAUNORUBICIN
     Indication: Acute myeloid leukaemia
     Dates: start: 20240814, end: 20240818

REACTIONS (2)
  - Brain abscess [Recovered/Resolved with Sequelae]
  - Bacillus infection [Recovered/Resolved with Sequelae]

NARRATIVE: CASE EVENT DATE: 20240902
